FAERS Safety Report 21357387 (Version 1)
Quarter: 2022Q3

REPORT INFORMATION
  Report Type: Spontaneous
  Country: RU (occurrence: RU)
  Receive Date: 20220921
  Receipt Date: 20220921
  Transmission Date: 20221027
  Serious: Yes (Other)
  Sender: FDA-Public Use
  Company Number: RU-AMGEN-RUSSP2022157731

PATIENT
  Age: 6 Year

DRUGS (2)
  1. BLINCYTO [Suspect]
     Active Substance: BLINATUMOMAB
     Indication: B precursor type acute leukaemia
     Dosage: 5 MCG/KG/DAY FROM DAYS 1 TO 8
     Route: 042
     Dates: start: 20210811, end: 20210907
  2. BLINCYTO [Suspect]
     Active Substance: BLINATUMOMAB
     Dosage: 15 MCG/KG/DAY FROM THE 9TH TO THE 28TH DAY
     Route: 042
     Dates: start: 20210917, end: 20211015

REACTIONS (3)
  - Neutropenic colitis [Recovered/Resolved]
  - Venoocclusive liver disease [Recovered/Resolved]
  - Stomatitis [Recovered/Resolved]
